FAERS Safety Report 9761584 (Version 1)
Quarter: 2013Q4

REPORT INFORMATION
  Report Type: Spontaneous
  Country: US (occurrence: US)
  Receive Date: 20131216
  Receipt Date: 20131216
  Transmission Date: 20140711
  Serious: Yes (Hospitalization)
  Sender: FDA-Public Use
  Company Number: US-TEVA-450495USA

PATIENT
  Age: 38 Year
  Sex: Male

DRUGS (2)
  1. ADENOSINE [Suspect]
     Indication: SUPRAVENTRICULAR TACHYCARDIA
     Dosage: 6MG; THEN 12MG
     Route: 040
  2. ADENOSINE [Suspect]
     Indication: SUPRAVENTRICULAR TACHYCARDIA
     Dosage: 12MG
     Route: 040

REACTIONS (1)
  - Arteriospasm coronary [Recovered/Resolved]
